FAERS Safety Report 6994572-0 (Version None)
Quarter: 2010Q3

REPORT INFORMATION
  Report Type: 
  Country: None (occurrence: None)
  Receive Date: 20100916
  Receipt Date: 20100916
  Transmission Date: 20110219
  Serious: Yes (Death)
  Sender: FDA-Public Use
  Company Number: None

PATIENT
  Sex: Male
  Weight: 38 kg

DRUGS (22)
  1. VORICONAZOLE [Suspect]
     Indication: ANTIFUNGAL PROPHYLAXIS
     Dosage: 200MG BID PO
     Route: 048
     Dates: start: 20100522, end: 20100808
  2. VORICONAZOLE [Suspect]
     Indication: ANTIFUNGAL PROPHYLAXIS
     Dosage: 200MG BID PO
     Route: 048
     Dates: start: 20100822, end: 20100823
  3. VORICONAZOLE [Suspect]
     Indication: ANTIFUNGAL PROPHYLAXIS
     Dosage: 200MG BID PO
     Route: 048
     Dates: start: 20100823, end: 20100825
  4. VORICONAZOLE [Suspect]
     Indication: ANTIFUNGAL PROPHYLAXIS
     Dosage: 240 MG Q12H IV
     Route: 042
     Dates: start: 20100808, end: 20100809
  5. VORICONAZOLE [Suspect]
     Indication: ANTIFUNGAL PROPHYLAXIS
     Dosage: 240 MG Q12H IV
     Route: 042
     Dates: start: 20100809, end: 20100822
  6. VORICONAZOLE [Suspect]
     Dosage: 300 MG X2 DOSES
     Dates: start: 20100902
  7. VORICONAZOLE [Suspect]
     Dosage: 300 MG X2 DOSES
     Dates: start: 20100903
  8. CIPRO [Concomitant]
  9. SEPTRA [Concomitant]
  10. MEROPENEM [Concomitant]
  11. LINEZOLOD [Concomitant]
  12. MICAFUNGIN [Concomitant]
  13. PREDNISONE TAB [Concomitant]
  14. METHYLPREDNISOLONE [Concomitant]
  15. AZTREONAM [Concomitant]
  16. INTERFERON GAMMA [Concomitant]
  17. LANSOPRAZOLE [Concomitant]
  18. RANITIDINE [Concomitant]
  19. ASACOL [Concomitant]
  20. FERROUS SULFATE [Concomitant]
  21. MULTI-VITAMIN [Concomitant]
  22. FAMOTIDINE [Concomitant]

REACTIONS (3)
  - GRANULOMA [None]
  - HEPATORENAL FAILURE [None]
  - PYREXIA [None]
